FAERS Safety Report 4374746-8 (Version None)
Quarter: 2004Q2

REPORT INFORMATION
  Report Type: 
  Country: None (occurrence: None)
  Receive Date: 20040604
  Receipt Date: 20040521
  Transmission Date: 20050107
  Serious: Yes (Other)
  Sender: FDA-Public Use
  Company Number: 8003504

PATIENT
  Age: 35 Year
  Sex: Female
  Weight: 104.5 kg

DRUGS (4)
  1. KEPPRA [Suspect]
     Indication: CONVULSION
     Dosage: 250 MG 1/D PO
     Route: 048
     Dates: start: 20010101
  2. KEPPRA [Suspect]
     Indication: CONVULSION
     Dosage: 250 MG 2/D PO
     Route: 048
  3. KEPPRA [Suspect]
     Indication: CONVULSION
     Dosage: 500 MG 2/D PO
     Route: 048
  4. KEPPRA [Suspect]
     Indication: CONVULSION
     Dosage: 1500 MG 2/D PO
     Route: 048

REACTIONS (4)
  - MASTICATION DISORDER [None]
  - MENTAL DISORDER [None]
  - MYASTHENIA GRAVIS [None]
  - SPEECH DISORDER [None]
